FAERS Safety Report 6802476-9 (Version None)
Quarter: 2010Q2

REPORT INFORMATION
  Report Type: 
  Country: None (occurrence: None)
  Receive Date: 20100628
  Receipt Date: 20100614
  Transmission Date: 20101027
  Serious: Yes (Other)
  Sender: FDA-Public Use
  Company Number: US-CELGENEUS-163-22393-10061675

PATIENT
  Sex: Male

DRUGS (1)
  1. ISTODAX [Suspect]
     Route: 051
     Dates: end: 20100501

REACTIONS (1)
  - ERYTHEMA MULTIFORME [None]
